FAERS Safety Report 7068249-X (Version None)
Quarter: 2010Q4

REPORT INFORMATION
  Report Type: 
  Country: None (occurrence: None)
  Receive Date: 20101027
  Receipt Date: 20101027
  Transmission Date: 20110411
  Serious: No
  Sender: FDA-Public Use
  Company Number: None

PATIENT
  Age: 6 Month
  Sex: Male
  Weight: 9.0719 kg

DRUGS (1)
  1. HYLANDS TEETHING TABLETS NOT PROVIDED ON LABEL HYLANDS INC. [Suspect]
     Indication: TEETHING
     Dosage: 2-3 TABLETS 4 TIMES DAILY SL
     Route: 060
     Dates: start: 20100825, end: 20100904

REACTIONS (4)
  - IRRITABILITY [None]
  - PAIN [None]
  - SCREAMING [None]
  - VOMITING [None]
